FAERS Safety Report 15666405 (Version 1)
Quarter: 2018Q4

REPORT INFORMATION
  Report Type: Report from Study
  Country: US (occurrence: US)
  Receive Date: 20181128
  Receipt Date: 20181128
  Transmission Date: 20190205
  Serious: Yes (Other)
  Sender: FDA-Public Use
  Company Number: US-SA-2018SA235078

PATIENT
  Age: 26 Year
  Sex: Female

DRUGS (8)
  1. ZYRTEC R [Concomitant]
     Indication: PROPHYLAXIS
     Dosage: 10 MG, QD
     Route: 048
     Dates: start: 20180820, end: 20180824
  2. SOLU-MEDROL [Concomitant]
     Active Substance: METHYLPREDNISOLONE SODIUM SUCCINATE
     Indication: PROPHYLAXIS
     Dosage: 500 MG, QD
     Route: 042
     Dates: start: 20180820, end: 20180824
  3. ONDANSETRON [Concomitant]
     Active Substance: ONDANSETRON
     Indication: NAUSEA
     Dosage: 4 MG, QD
     Route: 048
     Dates: start: 20180820, end: 20180820
  4. ZANTAC [Concomitant]
     Active Substance: RANITIDINE HYDROCHLORIDE
     Indication: PROPHYLAXIS
     Dosage: 75 MG, QD
     Route: 048
     Dates: start: 20180820, end: 20180824
  5. TYLENOL [Concomitant]
     Active Substance: ACETAMINOPHEN
     Indication: PROPHYLAXIS
     Dosage: UNK UNK, QD, DOSE: 500-1000MG
     Route: 048
     Dates: start: 20180820, end: 20180824
  6. ACYCLOVIR [ACICLOVIR] [Concomitant]
     Active Substance: ACYCLOVIR
     Indication: PROPHYLAXIS
     Dosage: 200 MG, QD
     Route: 048
     Dates: start: 201808
  7. ALEMTUZUMAB [Suspect]
     Active Substance: ALEMTUZUMAB
     Indication: MULTIPLE SCLEROSIS RELAPSE
     Dosage: 12 MG, QD
     Route: 041
     Dates: start: 20180820, end: 20180824
  8. DIPHENHYDRAMINE. [Concomitant]
     Active Substance: DIPHENHYDRAMINE
     Indication: PROPHYLAXIS
     Dosage: 25 MG, QD, ROUTE: IVP AND PO
     Dates: start: 20180820, end: 20180824

REACTIONS (11)
  - Fatigue [Not Recovered/Not Resolved]
  - Lymphocyte percentage abnormal [Not Recovered/Not Resolved]
  - Neutrophil percentage abnormal [Not Recovered/Not Resolved]
  - Anaemia [Not Recovered/Not Resolved]
  - Stomatitis [Recovered/Resolved]
  - Leukopenia [Not Recovered/Not Resolved]
  - Necrotising ulcerative gingivostomatitis [Recovered/Resolved]
  - Gingival swelling [Recovered/Resolved]
  - Urinary tract infection [Recovered/Resolved]
  - Oral mucosal eruption [Recovered/Resolved]
  - Lymphocyte count abnormal [Not Recovered/Not Resolved]

NARRATIVE: CASE EVENT DATE: 20180815
